FAERS Safety Report 10485891 (Version 1)
Quarter: 2014Q4

REPORT INFORMATION
  Report Type: Spontaneous
  Country: US (occurrence: US)
  Receive Date: 20141001
  Receipt Date: 20141001
  Transmission Date: 20150528
  Serious: Yes (Other)
  Sender: FDA-Public Use
  Company Number: US-BRISTOL-MYERS SQUIBB COMPANY-21452743

PATIENT
  Age: 88 Year
  Sex: Male
  Weight: 70.29 kg

DRUGS (1)
  1. COUMADIN [Suspect]
     Active Substance: WARFARIN SODIUM

REACTIONS (2)
  - Urinary bladder haemorrhage [Unknown]
  - Prostatic disorder [Recovering/Resolving]
